FAERS Safety Report 21989736 (Version 3)
Quarter: 2023Q1

REPORT INFORMATION
  Report Type: Spontaneous
  Country: US (occurrence: US)
  Receive Date: 20230214
  Receipt Date: 20230307
  Transmission Date: 20230418
  Serious: Yes (Life-Threatening, Hospitalization, Other)
  Sender: FDA-Public Use
  Company Number: US-PFIZER INC-PV202300025787

PATIENT
  Age: 52 Year
  Sex: Female

DRUGS (3)
  1. ALDACTONE [Suspect]
     Active Substance: SPIRONOLACTONE
     Dosage: UNK
  2. DILTIAZEM HYDROCHLORIDE [Suspect]
     Active Substance: DILTIAZEM HYDROCHLORIDE
     Dosage: UNK
  3. CARVEDILOL [Suspect]
     Active Substance: CARVEDILOL
     Dosage: UNK

REACTIONS (5)
  - Intentional overdose [Unknown]
  - Suicide attempt [Unknown]
  - Confusional state [Unknown]
  - Hypotension [Unknown]
  - Bradycardia [Unknown]
